FAERS Safety Report 7724504-9 (Version None)
Quarter: 2011Q3

REPORT INFORMATION
  Report Type: 
  Country: None (occurrence: None)
  Receive Date: 20110901
  Receipt Date: 20110823
  Transmission Date: 20111222
  Serious: Yes (Death)
  Sender: FDA-Public Use
  Company Number: JP-GLAXOSMITHKLINE-B0725992A

PATIENT
  Sex: Female
  Weight: 38 kg

DRUGS (14)
  1. FUROSEMIDE [Concomitant]
     Dosage: 20MG PER DAY
     Route: 048
     Dates: end: 20110501
  2. DEXTROMETHORPHAN HYDROBROMIDE [Concomitant]
     Dosage: 45MG PER DAY
     Route: 048
     Dates: end: 20110501
  3. LACTEC D [Concomitant]
     Route: 042
     Dates: start: 20110422, end: 20110426
  4. LEVOFLOXACIN [Concomitant]
     Dosage: 500MG PER DAY
     Route: 048
     Dates: end: 20110501
  5. SELBEX [Concomitant]
     Dosage: 150MG PER DAY
     Route: 048
     Dates: end: 20110501
  6. VITAMEDIN [Concomitant]
     Route: 042
     Dates: start: 20110422, end: 20110426
  7. LEVOTHYROXINE SODIUM [Concomitant]
     Dosage: 50MG PER DAY
     Route: 048
     Dates: end: 20110501
  8. MEROPENEM [Concomitant]
     Route: 042
     Dates: start: 20110422, end: 20110423
  9. LENDORMIN [Concomitant]
     Dosage: .25MG PER DAY
     Route: 048
     Dates: end: 20110501
  10. PURSENNID [Concomitant]
     Dosage: 24MG PER DAY
     Route: 048
     Dates: end: 20110501
  11. PROMACTA [Suspect]
     Indication: IDIOPATHIC THROMBOCYTOPENIC PURPURA
     Dosage: 12.5MG PER DAY
     Route: 048
     Dates: start: 20110425, end: 20110501
  12. ALLOPURINOL [Concomitant]
     Dosage: 100MG PER DAY
     Route: 048
     Dates: end: 20110501
  13. PREDNISOLONE [Concomitant]
     Dosage: 10MG PER DAY
     Route: 048
     Dates: end: 20110501
  14. LAC B [Concomitant]
     Dosage: 3G PER DAY
     Route: 048
     Dates: end: 20110501

REACTIONS (1)
  - CARDIAC FAILURE ACUTE [None]
